FAERS Safety Report 15968724 (Version 1)
Quarter: 2019Q1

REPORT INFORMATION
  Report Type: Spontaneous
  Country: CA (occurrence: CA)
  Receive Date: 20190215
  Receipt Date: 20190215
  Transmission Date: 20190418
  Serious: Yes (Hospitalization)
  Sender: FDA-Public Use
  Company Number: CA-PFIZER INC-3125555

PATIENT
  Age: 75 Year
  Sex: Female

DRUGS (16)
  1. TYLENOL [Concomitant]
     Active Substance: ACETAMINOPHEN
     Dosage: UNK
  2. DOCETAXEL. [Suspect]
     Active Substance: DOCETAXEL
     Indication: HER-2 POSITIVE BREAST CANCER
     Dosage: 116 MG, 1 EVERY 3 WEEKS (FREQ: 1 WEEK; INTERVAL: 3)
     Route: 042
  3. PERJETA [Suspect]
     Active Substance: PERTUZUMAB
     Dosage: 420 MG, 1 EVERY 3 WEEKS (FREQ: 1 WEEK; INTERVAL: 3)
     Route: 042
  4. IMODIUM [Concomitant]
     Active Substance: LOPERAMIDE HYDROCHLORIDE
     Dosage: UNK
  5. ZOFRAN [Concomitant]
     Active Substance: ONDANSETRON HYDROCHLORIDE
     Dosage: UNK
  6. CARBOPLATIN. [Suspect]
     Active Substance: CARBOPLATIN
     Indication: HER-2 POSITIVE BREAST CANCER
     Dosage: 490 MG, 1 EVERY 3 WEEKS (FREQ: 1 WEEK; INTERVAL: 3)
     Route: 042
  7. HERCEPTIN [Suspect]
     Active Substance: TRASTUZUMAB
     Indication: HER-2 POSITIVE BREAST CANCER
     Dosage: 6 MG/KG, 1 EVERY 3 WEEKS (FREQ: 1 WEEK; INTERVAL: 3)
     Route: 042
  8. HERCEPTIN [Suspect]
     Active Substance: TRASTUZUMAB
     Dosage: 440 MG, 1 EVERY 3 WEEKS (FREQ: 1 WEEK; INTERVAL: 3)
     Route: 042
  9. DOCETAXEL. [Suspect]
     Active Substance: DOCETAXEL
     Dosage: 93 MG, 1 EVERY 3 WEEKS (FREQ: 1 WEEK; INTERVAL: 3)
     Route: 042
  10. CALCIUM [Concomitant]
     Active Substance: CALCIUM
     Dosage: UNK
  11. CARBOPLATIN. [Suspect]
     Active Substance: CARBOPLATIN
     Dosage: 431 MG, 1 EVERY 3 WEEKS (FREQ: 1 WEEK; INTERVAL: 3)
     Route: 042
  12. PERJETA [Suspect]
     Active Substance: PERTUZUMAB
     Indication: HER-2 POSITIVE BREAST CANCER
     Dosage: 840 MG, 1 EVERY 3 WEEKS (FREQ: 1 WEEK; INTERVAL: 3)
     Route: 042
  13. DECADRON [Concomitant]
     Active Substance: DEXAMETHASONE
     Dosage: UNK
  14. EMEND [Concomitant]
     Active Substance: APREPITANT
     Dosage: UNK
  15. BENADRYL [Concomitant]
     Active Substance: DIPHENHYDRAMINE HYDROCHLORIDE
     Dosage: UNK
  16. STEMETIL /00013301/ [Concomitant]
     Active Substance: PROCHLORPERAZINE
     Dosage: UNK

REACTIONS (2)
  - Hypomagnesaemia [Recovered/Resolved]
  - Hypermagnesaemia [Recovered/Resolved]
